FAERS Safety Report 5749152-1 (Version None)
Quarter: 2008Q2

REPORT INFORMATION
  Report Type: 
  Country: None (occurrence: None)
  Receive Date: 20080522
  Receipt Date: 20080509
  Transmission Date: 20081010
  Serious: Yes (Other)
  Sender: FDA-Public Use
  Company Number: GXKR2008IT04310

PATIENT
  Age: 44 Year
  Sex: Male

DRUGS (6)
  1. CYCLOSPORINE [Suspect]
     Indication: IMMUNOSUPPRESSION
     Dosage: 204.9 NG/ML MEAN TROUGH CONC.,
  2. METHYLPREDNISOLONE [Suspect]
     Indication: IMMUNOSUPPRESSION
     Dosage: 1 G, ONCE/SINGLE,; TAPERING OFF FOR THREE MONTHS,
  3. LAMIVUDINE [Concomitant]
  4. IMMUNOGLOBULINS (IMMUNOGLOBULINS) UNKNOWN [Concomitant]
  5. INTERFERON (INTERFERON) UNKNOWN [Concomitant]
  6. RIBAVIRIN (RIBAVIRIN) UNKNOWN [Concomitant]

REACTIONS (4)
  - ASPERGILLOSIS [None]
  - DISEASE RECURRENCE [None]
  - HEPATITIS C [None]
  - KAPOSI'S SARCOMA [None]
